FAERS Safety Report 9303767 (Version 1)
Quarter: 2013Q2

REPORT INFORMATION
  Report Type: Spontaneous
  Country: US (occurrence: US)
  Receive Date: 20130522
  Receipt Date: 20130522
  Transmission Date: 20140414
  Serious: Yes (Other)
  Sender: FDA-Public Use
  Company Number: US-GLAXOSMITHKLINE-A1023850A

PATIENT
  Sex: Female

DRUGS (9)
  1. ADVAIR [Suspect]
     Indication: CHRONIC OBSTRUCTIVE PULMONARY DISEASE
     Dosage: 1PUFF TWICE PER DAY
     Route: 055
  2. VENTOLIN [Suspect]
     Indication: CHRONIC OBSTRUCTIVE PULMONARY DISEASE
     Dosage: 2PUFF SIX TIMES PER DAY
     Route: 055
  3. ALBUTEROL NEBULIZER [Concomitant]
  4. VENTOLIN [Concomitant]
  5. LETROZOLE [Concomitant]
  6. LISINOPRIL [Concomitant]
  7. GLIPIZIDE [Concomitant]
  8. METFORMIN [Concomitant]
  9. IBUPROFEN [Concomitant]

REACTIONS (6)
  - Breast cancer [Not Recovered/Not Resolved]
  - Dyspnoea [Unknown]
  - Blood pressure increased [Unknown]
  - Fall [Unknown]
  - Presyncope [Unknown]
  - Malaise [Unknown]
